FAERS Safety Report 5914735-2 (Version None)
Quarter: 2008Q4

REPORT INFORMATION
  Report Type: 
  Country: None (occurrence: None)
  Receive Date: 20081010
  Receipt Date: 20081002
  Transmission Date: 20090506
  Serious: Yes (Hospitalization)
  Sender: FDA-Public Use
  Company Number: AU-NOVOPROD-280019

PATIENT
  Sex: Female

DRUGS (2)
  1. MIXTARD HUMAN 70/30 [Suspect]
     Indication: TYPE 2 DIABETES MELLITUS
     Dosage: 40 UNITS AM, 30 UNITS PM
  2. MIXTARD HUMAN 70/30 [Suspect]
     Dosage: 48 UNITS AM, 30 UNITS PM

REACTIONS (3)
  - CEREBROVASCULAR ACCIDENT [None]
  - HYPOGLYCAEMIA [None]
  - PULMONARY OEDEMA [None]
